FAERS Safety Report 7036187-4 (Version None)
Quarter: 2010Q4

REPORT INFORMATION
  Report Type: 
  Country: None (occurrence: None)
  Receive Date: 20101008
  Receipt Date: 20100721
  Transmission Date: 20110411
  Serious: Yes (Other)
  Sender: FDA-Public Use
  Company Number: US-BRISTOL-MYERS SQUIBB COMPANY-15204639

PATIENT
  Age: 60 Year
  Sex: Female

DRUGS (3)
  1. AVAPRO [Suspect]
     Indication: HYPERTENSION
  2. CORICIDIN [Suspect]
     Dosage: CORICIDIN HBP MAX STRENGTH FLU. 1DF EVERY 4-6 HOURS
     Route: 048
  3. EVOXAC [Concomitant]

REACTIONS (1)
  - ANGIOEDEMA [None]
